FAERS Safety Report 12842949 (Version 4)
Quarter: 2017Q3

REPORT INFORMATION
  Report Type: Report from Study
  Country: FR (occurrence: FR)
  Receive Date: 20161013
  Receipt Date: 20170706
  Transmission Date: 20171127
  Serious: Yes (Death, Hospitalization, Other)
  Sender: FDA-Public Use
  Company Number: FR-ROCHE-1562098

PATIENT
  Age: 83 Year
  Sex: Female

DRUGS (3)
  1. RANIBIZUMAB. [Suspect]
     Active Substance: RANIBIZUMAB
     Indication: VISUAL IMPAIRMENT
     Dosage: LEFT EYE
     Route: 050
     Dates: start: 20140901
  2. RANIBIZUMAB. [Suspect]
     Active Substance: RANIBIZUMAB
     Indication: RETINAL VEIN OCCLUSION
     Dosage: LEFT EYE?LAST DOSE PRIOR TO THE EVENT ON 05 NOV 2014
     Route: 050
     Dates: start: 20141001
  3. RANIBIZUMAB. [Suspect]
     Active Substance: RANIBIZUMAB
     Dosage: LEFT EYE
     Route: 050
     Dates: start: 20141105, end: 20141105

REACTIONS (7)
  - Death [Fatal]
  - Fall [Unknown]
  - Blindness [Unknown]
  - Eye pain [Not Recovered/Not Resolved]
  - Visual acuity reduced [Unknown]
  - Corneal abscess [Recovered/Resolved with Sequelae]
  - Pseudomonas test positive [Unknown]

NARRATIVE: CASE EVENT DATE: 201411
